FAERS Safety Report 24885592 (Version 1)
Quarter: 2025Q1

REPORT INFORMATION
  Report Type: Report from Study
  Country: ZA (occurrence: ZA)
  Receive Date: 20250125
  Receipt Date: 20250125
  Transmission Date: 20250408
  Serious: Yes (Other)
  Sender: ABBVIE
  Company Number: ZA-ABBVIE-6097138

PATIENT
  Sex: Female

DRUGS (1)
  1. HUMIRA [Suspect]
     Active Substance: ADALIMUMAB
     Indication: Colitis ulcerative
     Dosage: FORM STRENGTH: 40 MG
     Route: 058
     Dates: start: 20230907

REACTIONS (4)
  - Ostomy bag placement [Unknown]
  - Drug ineffective [Unknown]
  - Drug level decreased [Unknown]
  - Blood iron decreased [Unknown]
